FAERS Safety Report 7587993-9 (Version None)
Quarter: 2011Q3

REPORT INFORMATION
  Report Type: 
  Country: None (occurrence: None)
  Receive Date: 20110705
  Receipt Date: 20110628
  Transmission Date: 20111222
  Serious: No
  Sender: FDA-Public Use
  Company Number: US-PFIZER INC-2011115580

PATIENT
  Sex: Male

DRUGS (4)
  1. DEPO-TESTOSTERONE [Suspect]
     Indication: BLOOD TESTOSTERONE DECREASED
     Dosage: 1 ML, EVERY 2WEEKS (200 MG/ ML)
     Route: 030
     Dates: start: 20080801
  2. LISINOPRIL [Concomitant]
     Dosage: 5 MG, 1X/DAY
  3. LEVOTHYROXINE SODIUM [Concomitant]
     Dosage: 50 UG, 1X/DAY
     Route: 048
  4. WELLBUTRIN [Concomitant]
     Dosage: 150 MG, 2X/DAY

REACTIONS (2)
  - INJECTION SITE PAIN [None]
  - POOR QUALITY DRUG ADMINISTERED [None]
